FAERS Safety Report 10208582 (Version 1)
Quarter: 2014Q2

REPORT INFORMATION
  Report Type: Spontaneous
  Country: GB (occurrence: GB)
  Receive Date: 20140530
  Receipt Date: 20140530
  Transmission Date: 20141212
  Serious: Yes (Disabling, Other)
  Sender: FDA-Public Use
  Company Number: GB-ACTAVIS-2014-11243

PATIENT
  Age: 53 Year
  Sex: Female
  Weight: 63 kg

DRUGS (2)
  1. LETROZOLE (UNKNOWN) [Suspect]
     Indication: CHEMOTHERAPY
     Dosage: UNK. INDICATION: FOLLOWING CHEMO, INSTEAD OF TAMOXIFEN.  I WAS TOLD IT WAS MORE EFFECTIVE THAN TAMOX
     Route: 048
     Dates: start: 201108, end: 201110
  2. TAMOXIFEN [Concomitant]
     Indication: PRODUCT USED FOR UNKNOWN INDICATION
     Dosage: UNK
     Route: 065

REACTIONS (2)
  - Musculoskeletal pain [Recovered/Resolved with Sequelae]
  - Arthralgia [Recovered/Resolved with Sequelae]
